FAERS Safety Report 9152303 (Version 1)
Quarter: 2013Q1

REPORT INFORMATION
  Report Type: Report from Study
  Country: DE (occurrence: DE)
  Receive Date: 20130308
  Receipt Date: 20130308
  Transmission Date: 20140127
  Serious: Yes (Life-Threatening, Hospitalization)
  Sender: FDA-Public Use
  Company Number: DE-ASTRAZENECA-2013SE14951

PATIENT
  Age: 7 Month
  Sex: Female
  Weight: 5.2 kg

DRUGS (9)
  1. SYNAGIS [Suspect]
     Indication: ANTIVIRAL PROPHYLAXIS
     Route: 030
     Dates: start: 20121009, end: 20121009
  2. SYNAGIS [Suspect]
     Indication: ANTIVIRAL PROPHYLAXIS
     Route: 030
     Dates: start: 20121109, end: 20121109
  3. SYNAGIS [Suspect]
     Indication: ANTIVIRAL PROPHYLAXIS
     Route: 030
     Dates: start: 20121212, end: 20121212
  4. SYNAGIS [Suspect]
     Indication: ANTIVIRAL PROPHYLAXIS
     Route: 030
     Dates: start: 20130114
  5. LANITOP [Concomitant]
  6. L-THYROXINE [Concomitant]
     Dosage: 100 UG/ML 5-0-0
  7. FERROSANOL [Concomitant]
     Dosage: 2 X 2
  8. LASIX [Concomitant]
  9. SILDENAFIL [Concomitant]

REACTIONS (8)
  - Pneumonia respiratory syncytial viral [Recovered/Resolved]
  - Respiratory failure [Recovered/Resolved]
  - Atelectasis [Unknown]
  - Atelectasis [Unknown]
  - Dehydration [Recovered/Resolved]
  - Hypernatraemia [Unknown]
  - Conjunctivitis infective [Unknown]
  - Gastroenteritis norovirus [Recovered/Resolved]
